FAERS Safety Report 7765524-8 (Version None)
Quarter: 2011Q3

REPORT INFORMATION
  Report Type: 
  Country: None (occurrence: None)
  Receive Date: 20110921
  Receipt Date: 20100409
  Transmission Date: 20111222
  Serious: No
  Sender: FDA-Public Use
  Company Number: US-BAYER-201020211NA

PATIENT
  Age: 21 Year
  Sex: Male

DRUGS (1)
  1. MIRENA [Suspect]
     Dosage: 20 MCG/24HR, USED IN THE PATIENT'S WIFE
     Dates: start: 20091101

REACTIONS (6)
  - PENILE PAIN [None]
  - GENITAL RASH [None]
  - PENILE BLISTER [None]
  - LIP BLISTER [None]
  - ORAL PAIN [None]
  - DERMATITIS BULLOUS [None]
